FAERS Safety Report 6238762-3 (Version None)
Quarter: 2009Q2

REPORT INFORMATION
  Report Type: 
  Country: None (occurrence: None)
  Receive Date: 20090618
  Receipt Date: 20090612
  Transmission Date: 20091009
  Serious: Yes (Other)
  Sender: FDA-Public Use
  Company Number: 2009SP009050

PATIENT
  Sex: Male

DRUGS (1)
  1. CORICIDIN II COUGH AND COLD (CHLORPHENIRAMINE MALEATE/DEXTROMETHORPHAN [Suspect]
     Dosage: 1 DF; PO
     Route: 048

REACTIONS (2)
  - DYSPHAGIA [None]
  - PHARYNGEAL OEDEMA [None]
